FAERS Safety Report 21136491 (Version 1)
Quarter: 2022Q3

REPORT INFORMATION
  Report Type: Spontaneous
  Country: ES (occurrence: ES)
  Receive Date: 20220727
  Receipt Date: 20220727
  Transmission Date: 20221026
  Serious: Yes (Hospitalization)
  Sender: FDA-Public Use
  Company Number: ES-MYLANLABS-2022M1081142

PATIENT
  Age: 75 Year
  Sex: Male

DRUGS (4)
  1. BISOPROLOL [Suspect]
     Active Substance: BISOPROLOL
     Indication: Cardiac failure
     Dosage: 5 MILLIGRAM, Q8H (FOR 8H)
     Route: 065
     Dates: start: 2018
  2. EPLERENONE [Suspect]
     Active Substance: EPLERENONE
     Indication: Cardiac failure
     Dosage: 25 MILLIGRAM, QD (FOR 24H)
     Route: 065
     Dates: start: 2018
  3. SACUBITRIL\VALSARTAN [Suspect]
     Active Substance: SACUBITRIL\VALSARTAN
     Indication: Cardiac failure
     Dosage: UNK, QD (FOR 24H)
     Route: 065
     Dates: start: 2018
  4. LEVOSIMENDAN [Suspect]
     Active Substance: LEVOSIMENDAN
     Indication: Cardiac failure
     Dosage: UNK, AMBULATORY INFUSIONS 4 WEEKS
     Route: 065
     Dates: start: 2018

REACTIONS (1)
  - Drug ineffective [Unknown]

NARRATIVE: CASE EVENT DATE: 20180101
